FAERS Safety Report 8066595-4 (Version None)
Quarter: 2012Q1

REPORT INFORMATION
  Report Type: 
  Country: None (occurrence: None)
  Receive Date: 20120124
  Receipt Date: 20120117
  Transmission Date: 20120608
  Serious: Yes (Life-Threatening)
  Sender: FDA-Public Use
  Company Number: PHEH2012US001557

PATIENT
  Sex: Female

DRUGS (1)
  1. ESTRADIOL [Suspect]
     Route: 062

REACTIONS (5)
  - DYSPNOEA [None]
  - LETHARGY [None]
  - BREAST TENDERNESS [None]
  - APPARENT LIFE THREATENING EVENT [None]
  - DRUG INEFFECTIVE [None]
